FAERS Safety Report 26179314 (Version 1)
Quarter: 2025Q4

REPORT INFORMATION
  Report Type: Spontaneous
  Country: US (occurrence: None)
  Receive Date: 20251218
  Receipt Date: 20251218
  Transmission Date: 20260118
  Serious: Yes (Hospitalization)
  Sender: FDA-CTU
  Company Number: None

PATIENT
  Sex: Female

DRUGS (11)
  1. GAMUNEX-C [Suspect]
     Active Substance: HUMAN IMMUNOGLOBULIN G
     Dosage: INFUSE 30 GRAMS INTRAVENOUSLY EVERY 8 WEEKS
     Route: 050
     Dates: start: 20180314
  2. ALBUTEROL [Concomitant]
     Active Substance: ALBUTEROL
  3. ALBUTEROL SULFATE [Concomitant]
     Active Substance: ALBUTEROL SULFATE
  4. AMITRIPTYLIN TAB 50MG [Concomitant]
  5. AMLODIPINE [Concomitant]
     Active Substance: AMLODIPINE BESYLATE
  6. ATIVAN TAB 1MG [Concomitant]
  7. CENTRUM TAB SILVER [Concomitant]
  8. FUROSEMIDE [Concomitant]
     Active Substance: FUROSEMIDE
  9. LASIX TAB 20MG [Concomitant]
  10. LEVOTHYROXIN TAB 125MCG [Concomitant]
  11. LORAZEPAM [Concomitant]
     Active Substance: LORAZEPAM

REACTIONS (1)
  - Hospitalisation [None]
